FAERS Safety Report 4278068-5 (Version None)
Quarter: 2004Q1

REPORT INFORMATION
  Report Type: 
  Country: None (occurrence: None)
  Receive Date: 20040120
  Receipt Date: 20040106
  Transmission Date: 20041129
  Serious: Yes (Hospitalization)
  Sender: FDA-Public Use
  Company Number: US-JNJFOC-20040100905

PATIENT
  Age: 57 Year
  Sex: Female
  Weight: 83.9154 kg

DRUGS (4)
  1. INFLIXIMAB (INFLIXIMAB, RECOMBINANT) LYOPHILIZED POWDER [Suspect]
     Indication: CROHN'S DISEASE
     Dosage: INTRAVENOUS
     Route: 042
  2. NARCOTIC ANALGESICS (ANALGESICS) [Concomitant]
  3. ANTIDEPRESSANTS (ANTIDEPRESSANTS) [Concomitant]
  4. OTHER CROHN'S THERAPY (ALL OTHER THERAPEUTIC PRODUCTS) [Concomitant]

REACTIONS (2)
  - JAW DISORDER [None]
  - SUBMANDIBULAR MASS [None]
